FAERS Safety Report 24253304 (Version 1)
Quarter: 2024Q3

REPORT INFORMATION
  Report Type: Spontaneous
  Country: CN (occurrence: CN)
  Receive Date: 20240827
  Receipt Date: 20240827
  Transmission Date: 20241016
  Serious: Yes (Other)
  Sender: RANBAXY
  Company Number: CN-SUN PHARMACEUTICAL INDUSTRIES LTD-2024R1-464494

PATIENT
  Age: 34 Year
  Sex: Female

DRUGS (3)
  1. PAZOPANIB [Suspect]
     Active Substance: PAZOPANIB
     Indication: Metastatic neoplasm
     Dosage: 800 MILLIGRAM
     Route: 048
     Dates: start: 20220108
  2. METHYLPREDNISOLONE [Suspect]
     Active Substance: METHYLPREDNISOLONE
     Indication: Pyrexia
     Dosage: 80 MILLIGRAM, BID
     Route: 042
  3. SINTILIMAB [Concomitant]
     Active Substance: SINTILIMAB
     Indication: Metastatic neoplasm
     Dosage: 200 MILLIGRAM
     Route: 065

REACTIONS (1)
  - Therapy partial responder [Unknown]
